FAERS Safety Report 14162744 (Version 1)
Quarter: 2017Q4

REPORT INFORMATION
  Report Type: Spontaneous
  Country: FR (occurrence: FR)
  Receive Date: 20171106
  Receipt Date: 20171106
  Transmission Date: 20180321
  Serious: Yes (Death, Life-Threatening, Other)
  Sender: FDA-Public Use
  Company Number: FR-AUROBINDO-AUR-APL-2017-43293

PATIENT
  Age: 11 Year
  Sex: Female

DRUGS (5)
  1. PREDNISONE. [Suspect]
     Active Substance: PREDNISONE
     Indication: MORPHOEA
     Route: 048
     Dates: start: 2012
  2. OXYGEN. [Concomitant]
     Active Substance: OXYGEN
     Indication: MORPHOEA
  3. CYCLOPHOSPHAMIDE. [Suspect]
     Active Substance: CYCLOPHOSPHAMIDE
     Indication: MORPHOEA
     Dates: start: 201209, end: 201302
  4. ILOPROST. [Suspect]
     Active Substance: ILOPROST
     Indication: MORPHOEA
  5. METHOTREXATE. [Suspect]
     Active Substance: METHOTREXATE
     Indication: MORPHOEA
     Route: 058
     Dates: start: 2012

REACTIONS (2)
  - Drug ineffective [Not Recovered/Not Resolved]
  - Disease progression [Fatal]
